FAERS Safety Report 17424460 (Version 1)
Quarter: 2020Q1

REPORT INFORMATION
  Report Type: Spontaneous
  Country: JP (occurrence: JP)
  Receive Date: 20200217
  Receipt Date: 20200217
  Transmission Date: 20200409
  Serious: Yes (Other)
  Sender: FDA-Public Use
  Company Number: JP-TEVA-2020-JP-1186186

PATIENT
  Age: 68 Year
  Sex: Male

DRUGS (8)
  1. GLUCOSE 5% [Concomitant]
     Active Substance: DEXTROSE
     Indication: OESOPHAGEAL SQUAMOUS CELL CARCINOMA
     Dosage: 250-500ML ON DAY 1
     Route: 041
  2. FLUOROURACIL. [Suspect]
     Active Substance: FLUOROURACIL
     Indication: RECTAL CANCER
     Dosage: OVER 2 DAYS (FOLFOX REGIMEN)
     Route: 041
  3. LEUCOVORIN. [Concomitant]
     Active Substance: LEUCOVORIN
     Indication: RECTAL CANCER
  4. OXALIPLATIN. [Suspect]
     Active Substance: OXALIPLATIN
     Indication: RECTAL CANCER
  5. OXALIPLATIN. [Suspect]
     Active Substance: OXALIPLATIN
     Indication: OESOPHAGEAL SQUAMOUS CELL CARCINOMA
     Dosage: ON DAY 1 (FOLFOX REGIMEN)
     Route: 041
  6. FLUOROURACIL. [Suspect]
     Active Substance: FLUOROURACIL
     Indication: OESOPHAGEAL SQUAMOUS CELL CARCINOMA
     Dosage: ON DAY 1 (FOLFOX REGIMEN)
     Route: 040
  7. LEUCOVORIN. [Concomitant]
     Active Substance: LEUCOVORIN
     Indication: OESOPHAGEAL SQUAMOUS CELL CARCINOMA
     Dosage: FOLFOX REGIMEN
     Route: 041
  8. GLUCOSE 5% [Concomitant]
     Active Substance: DEXTROSE
     Indication: RECTAL CANCER

REACTIONS (2)
  - Encephalitis [Recovered/Resolved]
  - Off label use [Unknown]
